FAERS Safety Report 22170305 (Version 1)
Quarter: 2023Q2

REPORT INFORMATION
  Report Type: Report from Study
  Country: US (occurrence: US)
  Receive Date: 20230404
  Receipt Date: 20230404
  Transmission Date: 20230722
  Serious: Yes (Hospitalization)
  Sender: FDA-Public Use
  Company Number: US-INSMED, INC.-2023-01125-US

PATIENT
  Sex: Male

DRUGS (1)
  1. ARIKAYCE [Suspect]
     Active Substance: AMIKACIN
     Indication: Product used for unknown indication
     Dosage: 590 MILLIGRAM
     Route: 065

REACTIONS (6)
  - Ear disorder [Unknown]
  - Eye disorder [Unknown]
  - Hospitalisation [Unknown]
  - Insomnia [Unknown]
  - Decreased appetite [Unknown]
  - Unevaluable event [Unknown]
